FAERS Safety Report 4865931-7 (Version None)
Quarter: 2005Q4

REPORT INFORMATION
  Report Type: 
  Country: None (occurrence: None)
  Receive Date: 20051226
  Receipt Date: 20051212
  Transmission Date: 20060501
  Serious: Yes (Death)
  Sender: FDA-Public Use
  Company Number: PHBS2005MX18416

PATIENT
  Age: 74 Year
  Sex: Female

DRUGS (2)
  1. RIVOTRIL [Concomitant]
     Route: 048
  2. DIOVAN HCT [Suspect]
     Dosage: 1 DF, UNK
     Route: 048

REACTIONS (2)
  - CARDIAC ARREST [None]
  - EMBOLISM [None]
